FAERS Safety Report 15249683 (Version 5)
Quarter: 2019Q4

REPORT INFORMATION
  Report Type: Spontaneous
  Country: US (occurrence: US)
  Receive Date: 20180807
  Receipt Date: 20191202
  Transmission Date: 20200122
  Serious: No
  Sender: FDA-Public Use
  Company Number: US-SA-2018SA213007

PATIENT
  Age: 59 Year
  Sex: Female

DRUGS (4)
  1. LATANOPROST. [Concomitant]
     Active Substance: LATANOPROST
  2. IBANDRONATE [Concomitant]
     Active Substance: IBANDRONATE SODIUM
  3. DUPIXENT [Suspect]
     Active Substance: DUPILUMAB
     Indication: DERMATITIS ATOPIC
     Dosage: 300 MG, QOW
     Route: 058
     Dates: start: 20180123
  4. TIMOLOL. [Concomitant]
     Active Substance: TIMOLOL

REACTIONS (4)
  - Osteoporosis [Not Recovered/Not Resolved]
  - Malaise [Unknown]
  - Dermatitis atopic [Unknown]
  - Rash [Recovering/Resolving]
